FAERS Safety Report 23861006 (Version 2)
Quarter: 2024Q3

REPORT INFORMATION
  Report Type: Report from Study
  Country: US (occurrence: US)
  Receive Date: 20240516
  Receipt Date: 20240705
  Transmission Date: 20241017
  Serious: Yes (Hospitalization)
  Sender: ROCHE
  Company Number: US-ROCHE-3560645

PATIENT
  Age: 45 Year
  Sex: Female

DRUGS (1)
  1. ACTEMRA [Suspect]
     Active Substance: TOCILIZUMAB
     Indication: Rheumatoid arthritis
     Dosage: INJECT THE CONTENTS OF ONE DEVICE UNDER THE SKIN EVERY TWO WEEKS
     Route: 058

REACTIONS (1)
  - Hepatic cirrhosis [Unknown]
